FAERS Safety Report 16729111 (Version 3)
Quarter: 2020Q1

REPORT INFORMATION
  Report Type: Spontaneous
  Country: GB (occurrence: GB)
  Receive Date: 20190822
  Receipt Date: 20200109
  Transmission Date: 20200409
  Serious: Yes (Hospitalization)
  Sender: FDA-Public Use
  Company Number: PHHY2019GB193164

PATIENT
  Age: 11 Year
  Sex: Male

DRUGS (7)
  1. ZOLEDRONIC ACID [Suspect]
     Active Substance: ZOLEDRONIC ACID
     Indication: SPINAL COMPRESSION FRACTURE
     Dosage: 0.025 MG/KG (TOTAL)
     Route: 041
  2. CALCIUM [Concomitant]
     Active Substance: CALCIUM
     Indication: MINERAL SUPPLEMENTATION
     Dosage: UNK
     Route: 065
  3. CALCIUM [Concomitant]
     Active Substance: CALCIUM
     Indication: PROPHYLAXIS
     Dosage: CALCIUM SUPPLEMENTATION AS PER HOSPITAL PROTOCOL
     Route: 065
  4. ZOLEDRONIC ACID [Suspect]
     Active Substance: ZOLEDRONIC ACID
     Dosage: RECEIVED A HALF DOSE OF ZOLEDRONATE (0.025 MG/KG)
     Route: 042
     Dates: start: 20171201, end: 20171201
  5. DEFLAZACORT [Concomitant]
     Active Substance: DEFLAZACORT
     Indication: DUCHENNE MUSCULAR DYSTROPHY
     Dosage: 18 MG, QD
     Route: 065
  6. VITAMIN D [Concomitant]
     Active Substance: VITAMIN D NOS
     Indication: PROPHYLAXIS
     Dosage: UNK
     Route: 065
  7. COLECALCIFEROL [Concomitant]
     Active Substance: CHOLECALCIFEROL
     Indication: PRODUCT USED FOR UNKNOWN INDICATION
     Dosage: UNK
     Route: 065

REACTIONS (14)
  - Chromaturia [Unknown]
  - Pyrexia [Recovered/Resolved]
  - Tachycardia [Recovered/Resolved]
  - Systemic inflammatory response syndrome [Recovered/Resolved]
  - Inflammation [Recovered/Resolved]
  - Tachypnoea [Unknown]
  - Blood urine present [Unknown]
  - Hypocalcaemia [Recovered/Resolved]
  - Rhabdomyolysis [Recovered/Resolved]
  - Hypophosphataemia [Recovered/Resolved]
  - Product use in unapproved indication [Unknown]
  - Myoglobinuria [Recovered/Resolved]
  - Muscle spasms [Recovered/Resolved]
  - Back pain [Recovered/Resolved]

NARRATIVE: CASE EVENT DATE: 20171202
